FAERS Safety Report 13273713 (Version 1)
Quarter: 2017Q1

REPORT INFORMATION
  Report Type: Spontaneous
  Country: US (occurrence: US)
  Receive Date: 20170227
  Receipt Date: 20170227
  Transmission Date: 20170428
  Serious: Yes (Hospitalization)
  Sender: FDA-Public Use
  Company Number: US-MALLINCKRODT-T201700578

PATIENT
  Sex: Male

DRUGS (3)
  1. GABLOFEN [Suspect]
     Active Substance: BACLOFEN
     Indication: HEAD INJURY
  2. LIORESAL [Suspect]
     Active Substance: BACLOFEN
     Indication: PRODUCT USED FOR UNKNOWN INDICATION
     Dosage: 590 MCG/DAY
     Route: 037
  3. GABLOFEN [Suspect]
     Active Substance: BACLOFEN
     Indication: MUSCLE SPASTICITY
     Dosage: UNK
     Route: 037

REACTIONS (24)
  - Sensory loss [Unknown]
  - Device related infection [Unknown]
  - Hypertonia [Unknown]
  - Pain [Unknown]
  - Insomnia [Unknown]
  - Muscle rigidity [Unknown]
  - Muscle injury [Unknown]
  - Areflexia [Unknown]
  - Therapy non-responder [Unknown]
  - Skin atrophy [Unknown]
  - Performance status decreased [Unknown]
  - Implant site infection [Unknown]
  - Infusion site mass [Unknown]
  - Implant site pain [Unknown]
  - Medical device site discomfort [Unknown]
  - Medical device site erosion [Unknown]
  - Discomfort [Unknown]
  - Muscle disorder [Unknown]
  - Urinary tract infection [Unknown]
  - General physical health deterioration [Unknown]
  - Incorrect dose administered [Unknown]
  - Medical device site bruise [Unknown]
  - Frustration tolerance decreased [Unknown]
  - Muscle spasticity [Unknown]
